FAERS Safety Report 6416021-3 (Version None)
Quarter: 2009Q4

REPORT INFORMATION
  Report Type: 
  Country: None (occurrence: None)
  Receive Date: 20091027
  Receipt Date: 20091015
  Transmission Date: 20100525
  Serious: Yes (Hospitalization)
  Sender: FDA-Public Use
  Company Number: FR-AVENTIS-200913872FR

PATIENT
  Age: 93 Year
  Sex: Female

DRUGS (11)
  1. LOVENOX [Suspect]
     Indication: THROMBOSIS PROPHYLAXIS
     Route: 058
     Dates: start: 20090909
  2. OXACILLIN [Suspect]
     Indication: ENDOCARDITIS
     Route: 042
     Dates: start: 20090909, end: 20090928
  3. GENTAMICINE PANPHARMA [Suspect]
     Indication: ENDOCARDITIS
     Route: 042
     Dates: start: 20090909, end: 20090912
  4. SOLUPRED                           /00016201/ [Concomitant]
     Indication: DRUG USE FOR UNKNOWN INDICATION
     Route: 048
  5. KARDEGIC                           /00002703/ [Concomitant]
     Indication: DRUG USE FOR UNKNOWN INDICATION
  6. SOTALEX [Concomitant]
     Indication: DRUG USE FOR UNKNOWN INDICATION
     Route: 048
  7. COVERSYL                           /00790701/ [Concomitant]
     Indication: DRUG USE FOR UNKNOWN INDICATION
  8. DIFFU K [Concomitant]
     Indication: DRUG USE FOR UNKNOWN INDICATION
     Route: 048
  9. LOXEN [Concomitant]
     Indication: DRUG USE FOR UNKNOWN INDICATION
  10. NEXIUM [Concomitant]
     Indication: DRUG USE FOR UNKNOWN INDICATION
  11. TPN [Concomitant]
     Indication: DRUG USE FOR UNKNOWN INDICATION
     Route: 048

REACTIONS (2)
  - HEPATOCELLULAR INJURY [None]
  - RASH MACULAR [None]
